FAERS Safety Report 8585140-8 (Version None)
Quarter: 2012Q3

REPORT INFORMATION
  Report Type: 
  Country: None (occurrence: None)
  Receive Date: 20120810
  Receipt Date: 20120805
  Transmission Date: 20120928
  Serious: Yes (Other)
  Sender: FDA-Public Use
  Company Number: PHHY2012MX068769

PATIENT
  Sex: Male

DRUGS (1)
  1. TRILEPTAL [Suspect]
     Indication: EPILEPSY
     Dosage: 3 TABS (300MG) DAILY
     Dates: start: 20101001, end: 20120301

REACTIONS (4)
  - BRAIN OEDEMA [None]
  - DYSPHAGIA [None]
  - PARALYSIS [None]
  - SPEECH DISORDER [None]
